FAERS Safety Report 8451756-2 (Version None)
Quarter: 2012Q2

REPORT INFORMATION
  Report Type: 
  Country: None (occurrence: None)
  Receive Date: 20120620
  Receipt Date: 20120316
  Transmission Date: 20120825
  Serious: No
  Sender: FDA-Public Use
  Company Number: US-VERTEX PHARMACEUTICALS INC.-AE-2012-003835

PATIENT
  Age: 63 Year
  Sex: Male
  Weight: 78.996 kg

DRUGS (4)
  1. PROCRIT [Concomitant]
     Indication: ANAEMIA
     Route: 058
  2. RIBAVIRIN [Concomitant]
     Indication: HEPATITIS C
     Route: 048
     Dates: start: 20111214
  3. PEGASYS [Concomitant]
     Indication: HEPATITIS C
     Route: 058
     Dates: start: 20111214
  4. INCIVEK [Suspect]
     Indication: HEPATITIS C
     Route: 048
     Dates: start: 20111214, end: 20120314

REACTIONS (4)
  - RASH PRURITIC [None]
  - ANAL PRURITUS [None]
  - DYSPEPSIA [None]
  - ANORECTAL DISCOMFORT [None]
